FAERS Safety Report 21337782 (Version 1)
Quarter: 2022Q3

REPORT INFORMATION
  Report Type: Spontaneous
  Country: US (occurrence: None)
  Receive Date: 20220915
  Receipt Date: 20220915
  Transmission Date: 20221027
  Serious: Yes (Hospitalization)
  Sender: FDA-Public Use
  Company Number: None

PATIENT
  Age: 3 Year
  Sex: Female

DRUGS (2)
  1. TOBRAMYCIN [Suspect]
     Active Substance: TOBRAMYCIN
     Indication: Chronic respiratory failure
     Dosage: OTHER QUANTITY : 300MG/5ML;?OTHER FREQUENCY : 28 DAYS ON/28 DAYS;?
     Route: 055
     Dates: start: 20220413
  2. TOBRAMYCIN [Suspect]
     Active Substance: TOBRAMYCIN
     Indication: Hypercapnia

REACTIONS (1)
  - Surgery [None]

NARRATIVE: CASE EVENT DATE: 20220820
